FAERS Safety Report 4422774-6 (Version None)
Quarter: 2004Q3

REPORT INFORMATION
  Report Type: 
  Country: None (occurrence: None)
  Receive Date: 20040713
  Receipt Date: 20030710
  Transmission Date: 20050211
  Serious: No
  Sender: FDA-Public Use
  Company Number: PHEH2003US05534

PATIENT
  Age: 55 Year
  Sex: Female

DRUGS (11)
  1. ELIDEL [Suspect]
     Indication: HERPES ZOSTER
     Dosage: PRN, TOPICAL
     Route: 061
     Dates: start: 20030417, end: 20030601
  2. TOBRAMYCIN [Concomitant]
  3. CIPRO [Concomitant]
  4. ZYRTEC [Concomitant]
  5. SINGULAIR ^MERCK^ (MONTELUKAST SODIUM) [Concomitant]
  6. GENTAMYCIN SULFATE [Concomitant]
  7. BECONASE (BECLOMETASONE DIPROPIONATE) [Concomitant]
  8. GUAIFENESIN [Concomitant]
  9. ADVAIR (SALMETEROL XINAFOATE) [Concomitant]
  10. FLOVENT [Concomitant]
  11. ESTRA-D (ESTRADIOL CIPIONATE) [Concomitant]

REACTIONS (1)
  - CONDYLOMA ACUMINATUM [None]
